FAERS Safety Report 21158518 (Version 1)
Quarter: 2022Q3

REPORT INFORMATION
  Report Type: Report from Study
  Country: US (occurrence: US)
  Receive Date: 20220801
  Receipt Date: 20220801
  Transmission Date: 20221027
  Serious: Yes (Other)
  Sender: FDA-Public Use
  Company Number: US-BRISTOL-MYERS SQUIBB COMPANY-2022-079126

PATIENT
  Age: 79 Year
  Sex: Female
  Weight: 87.996 kg

DRUGS (1)
  1. REVLIMID [Suspect]
     Active Substance: LENALIDOMIDE
     Indication: Product used for unknown indication
     Dosage: NIGHTLY FOR 21 DAYS OUT OF 28 DAYS
     Route: 048

REACTIONS (1)
  - Blood disorder [Unknown]
